FAERS Safety Report 16952477 (Version 1)
Quarter: 2019Q4

REPORT INFORMATION
  Report Type: Spontaneous
  Country: US (occurrence: US)
  Receive Date: 20191022
  Receipt Date: 20191022
  Transmission Date: 20200122
  Serious: Yes (Hospitalization)
  Sender: FDA-Public Use
  Company Number: None

PATIENT
  Sex: Female

DRUGS (7)
  1. ASPIRIN 81MG [Concomitant]
     Active Substance: ASPIRIN
  2. PERCOCET [Concomitant]
     Active Substance: ACETAMINOPHEN\OXYCODONE HYDROCHLORIDE
  3. OMEPRAZOLE. [Concomitant]
     Active Substance: OMEPRAZOLE
  4. IBUPROFEN. [Concomitant]
     Active Substance: IBUPROFEN
  5. QUINAPRIL. [Concomitant]
     Active Substance: QUINAPRIL
  6. LYRICA [Concomitant]
     Active Substance: PREGABALIN
  7. GLATIRAMER [Suspect]
     Active Substance: GLATIRAMER
     Indication: MULTIPLE SCLEROSIS
     Dosage: ?          OTHER FREQUENCY:TIW;?
     Route: 058
     Dates: start: 20180216

REACTIONS (8)
  - Urinary tract infection [None]
  - Lymphoedema [None]
  - Sepsis [None]
  - Swelling [None]
  - Influenza [None]
  - Pneumonia [None]
  - Fungal infection [None]
  - Atrial fibrillation [None]
